FAERS Safety Report 18206822 (Version 1)
Quarter: 2020Q3

REPORT INFORMATION
  Report Type: Spontaneous
  Country: US (occurrence: US)
  Receive Date: 20200827
  Receipt Date: 20200827
  Transmission Date: 20201103
  Serious: No
  Sender: FDA-Public Use
  Company Number: None

PATIENT
  Age: 67 Year
  Sex: Female
  Weight: 75.15 kg

DRUGS (15)
  1. IBRANCE [Suspect]
     Active Substance: PALBOCICLIB
     Indication: BREAST CANCER
     Dosage: ?          OTHER FREQUENCY:DAILY FOR 21/28D;?
     Route: 048
     Dates: start: 20200629, end: 20200827
  2. ALBUTEROL HFA [Concomitant]
     Active Substance: ALBUTEROL SULFATE
  3. ESCITALOPRAM [Concomitant]
     Active Substance: ESCITALOPRAM OXALATE
  4. MIDODRINE [Concomitant]
     Active Substance: MIDODRINE
  5. CLONAZEPAM. [Concomitant]
     Active Substance: CLONAZEPAM
  6. FLUDROCORTISONE [Concomitant]
     Active Substance: FLUDROCORTISONE
  7. MULTIVITAMIN [Concomitant]
     Active Substance: VITAMINS
  8. TRAZODONE [Concomitant]
     Active Substance: TRAZODONE HYDROCHLORIDE
  9. BUPROPION. [Concomitant]
     Active Substance: BUPROPION
  10. PRAMIPEXOLE. [Concomitant]
     Active Substance: PRAMIPEXOLE
  11. ONDANSETRON [Concomitant]
     Active Substance: ONDANSETRON
  12. XARELETO [Concomitant]
  13. ACETAMINOPHEN. [Concomitant]
     Active Substance: ACETAMINOPHEN
  14. DOCUSATE [Concomitant]
     Active Substance: DOCUSATE
  15. PANTOPRAZOLE [Concomitant]
     Active Substance: PANTOPRAZOLE

REACTIONS (1)
  - Disease progression [None]

NARRATIVE: CASE EVENT DATE: 20200827
